FAERS Safety Report 6399402-6 (Version None)
Quarter: 2009Q4

REPORT INFORMATION
  Report Type: 
  Country: None (occurrence: None)
  Receive Date: 20091007
  Receipt Date: 20091007
  Transmission Date: 20100525
  Serious: Yes (Hospitalization)
  Sender: FDA-Public Use
  Company Number: None

PATIENT
  Age: 88 Year
  Sex: Male
  Weight: 81 kg

DRUGS (12)
  1. SULFAMETHOXAZOLE AND TRIMETHOPRIM [Suspect]
     Indication: CELLULITIS
     Dosage: 800/160MG TWICE DAILY ORAL
     Route: 048
     Dates: start: 20090526
  2. LEVOTHYROXINE SODIUM [Concomitant]
  3. DIGOXIN [Concomitant]
  4. WARFARIN SODIUM [Concomitant]
  5. M.V.I. [Concomitant]
  6. POTASSIUM CHLORIDE [Concomitant]
  7. METOLAZONE [Concomitant]
  8. CEPHALOXIN [Concomitant]
  9. VALSARTAN [Concomitant]
  10. IBANDRONATE SODIUM [Concomitant]
  11. FUROSEMIDE [Concomitant]
  12. CALCIUM [Concomitant]

REACTIONS (2)
  - HYPERKALAEMIA [None]
  - RENAL FAILURE ACUTE [None]
